FAERS Safety Report 9627152 (Version 1)
Quarter: 2013Q4

REPORT INFORMATION
  Report Type: Spontaneous
  Country: DE (occurrence: DE)
  Receive Date: 20131016
  Receipt Date: 20131016
  Transmission Date: 20140711
  Serious: Yes (Congenital Anomaly)
  Sender: FDA-Public Use
  Company Number: DE-TEVA-437440GER

PATIENT
  Age: 0 Year
  Sex: Male

DRUGS (4)
  1. MIRTAZAPIN [Suspect]
     Route: 064
  2. CETIRIZIN [Concomitant]
     Route: 064
  3. NASONEX [Concomitant]
     Route: 064
  4. FOLSAEURE [Concomitant]
     Route: 064

REACTIONS (5)
  - Congenital aortic valve stenosis [Not Recovered/Not Resolved]
  - Congenital aortic valve incompetence [Not Recovered/Not Resolved]
  - Bicuspid aortic valve [Not Recovered/Not Resolved]
  - Cytogenetic abnormality [Not Recovered/Not Resolved]
  - Atrial septal defect [Not Recovered/Not Resolved]
